FAERS Safety Report 12844487 (Version 1)
Quarter: 2016Q4

REPORT INFORMATION
  Report Type: Spontaneous
  Country: US (occurrence: US)
  Receive Date: 20161012
  Receipt Date: 20161012
  Transmission Date: 20170207
  Serious: Yes (Life-Threatening)
  Sender: FDA-Public Use
  Company Number: None

PATIENT
  Age: 70 Year
  Sex: Female
  Weight: 66.6 kg

DRUGS (6)
  1. PROGESTERONE. [Concomitant]
     Active Substance: PROGESTERONE
  2. ESTRADIOL. [Concomitant]
     Active Substance: ESTRADIOL
  3. PANTOPRAZOLE [Concomitant]
     Active Substance: PANTOPRAZOLE SODIUM
  4. IBUPROFEN. [Concomitant]
     Active Substance: IBUPROFEN
  5. METRONIDAZOLE VAGINAL GEL 0.75 % [Suspect]
     Active Substance: METRONIDAZOLE
     Indication: VAGINITIS BACTERIAL
     Dosage: QUANTITY:5 INHALATION(S); (SECOND STRENGTH NUMBER - 70%)?
     Route: 067
     Dates: start: 20161004, end: 20161008
  6. ATORVASTATIN CALCIUM. [Concomitant]
     Active Substance: ATORVASTATIN CALCIUM

REACTIONS (5)
  - Headache [None]
  - Swelling [None]
  - Malaise [None]
  - Rash generalised [None]
  - Pruritus [None]

NARRATIVE: CASE EVENT DATE: 20161011
